FAERS Safety Report 8986668 (Version 1)
Quarter: 2012Q4

REPORT INFORMATION
  Report Type: 
  Country: IN (occurrence: IN)
  Receive Date: 20121227
  Receipt Date: 20121227
  Transmission Date: 20130627
  Serious: Yes (Death)
  Sender: FDA-Public Use
  Company Number: PHHY2012IN043005

PATIENT
  Age: 58 Year
  Sex: Male

DRUGS (3)
  1. GLIVEC [Suspect]
     Indication: CHRONIC MYELOID LEUKAEMIA
     Dosage: 600 mg, UNK
  2. GLIVEC [Suspect]
     Dosage: 400 mg, UNK
  3. GLIVEC [Suspect]
     Dosage: 600 mg, UNK

REACTIONS (4)
  - Death [Fatal]
  - Therapeutic response decreased [Unknown]
  - Diarrhoea [Unknown]
  - White blood cell count increased [Unknown]
